FAERS Safety Report 23289887 (Version 2)
Quarter: 2024Q1

REPORT INFORMATION
  Report Type: Report from Study
  Country: US (occurrence: US)
  Receive Date: 20231212
  Receipt Date: 20240117
  Transmission Date: 20240409
  Serious: Yes (Other)
  Sender: FDA-Public Use
  Company Number: US-ABBVIE-5531302

PATIENT
  Sex: Male

DRUGS (1)
  1. HUMIRA [Suspect]
     Active Substance: ADALIMUMAB
     Indication: Colitis ulcerative
     Dosage: FORM STRENGTH: 40MG?CITRATE FREE
     Route: 058
     Dates: start: 20210429

REACTIONS (7)
  - Myocardial infarction [Recovered/Resolved]
  - Sinusitis [Unknown]
  - Unevaluable event [Unknown]
  - Feeling abnormal [Unknown]
  - Muscle spasms [Unknown]
  - Fatigue [Unknown]
  - Weight increased [Unknown]
